FAERS Safety Report 7771945-X (Version None)
Quarter: 2011Q3

REPORT INFORMATION
  Report Type: 
  Country: None (occurrence: None)
  Receive Date: 20110922
  Receipt Date: 20100226
  Transmission Date: 20111222
  Serious: Yes (Other)
  Sender: FDA-Public Use
  Company Number: US-ASTRAZENECA-2007UW17570

PATIENT
  Age: 17076 Day
  Sex: Male

DRUGS (19)
  1. BUSPAR [Concomitant]
     Dates: end: 20100205
  2. TRAZODONE HCL [Concomitant]
     Dates: start: 20100205
  3. KLONOPIN [Concomitant]
     Dates: start: 20100205
  4. SEROQUEL [Suspect]
     Dosage: 1 OR 2 TABLETS EVERY NIGHT
     Route: 048
     Dates: start: 20021126
  5. NEURONTIN [Concomitant]
     Dates: start: 20021126
  6. TRAZODONE HCL [Concomitant]
     Dosage: 50 MG TAKE 1 TO 2 TABLETS EVERY NIGHT AS NEEDED FOR SLEEP
     Dates: start: 20021126
  7. ZOCOR [Concomitant]
     Dates: start: 20100205
  8. PROPRANOLOL [Concomitant]
     Dates: end: 20100205
  9. CRESTOR [Concomitant]
     Dates: end: 20100205
  10. COMBIVENT [Concomitant]
     Dosage: 2 PUFF Q6H PRN
     Dates: end: 20100205
  11. ADVAIR DISKUS 100/50 [Concomitant]
     Dosage: AS DIRECTED
     Dates: start: 20030403
  12. CELEXA [Concomitant]
     Dosage: 10-40 MG
     Dates: start: 20021126, end: 20100205
  13. BUSPAR [Concomitant]
     Dates: start: 20021126
  14. TRICOR [Concomitant]
     Dates: start: 20100205
  15. VIAGRA [Concomitant]
     Dosage: 5 MG
     Dates: start: 20030714
  16. SEROQUEL [Suspect]
     Route: 048
     Dates: end: 20100205
  17. ABILIFY [Concomitant]
     Dates: start: 20100205
  18. ALBUTEROL [Concomitant]
     Dosage: HFA 2 PUFFS Q6HRS PRN
     Dates: start: 20100205
  19. ROZEREM [Concomitant]
     Dosage: 8 MG
     Dates: end: 20100205

REACTIONS (2)
  - TYPE 2 DIABETES MELLITUS [None]
  - ERECTILE DYSFUNCTION [None]
